FAERS Safety Report 15606510 (Version 2)
Quarter: 2018Q4

REPORT INFORMATION
  Report Type: Spontaneous
  Country: DE (occurrence: DE)
  Receive Date: 20181112
  Receipt Date: 20181126
  Transmission Date: 20190205
  Serious: Yes (Death, Hospitalization, Other)
  Sender: FDA-Public Use
  Company Number: PHHY2018DE151667

PATIENT
  Sex: Male

DRUGS (13)
  1. OMEPRAZOLE. [Concomitant]
     Active Substance: OMEPRAZOLE
     Indication: PROPHYLAXIS
     Dosage: 20 MG, QD
     Route: 065
  2. PREDNISOLONE. [Concomitant]
     Active Substance: PREDNISOLONE
     Indication: PRODUCT USED FOR UNKNOWN INDICATION
     Dosage: 75 MG, QD
     Route: 065
  3. RYDAPT [Suspect]
     Active Substance: MIDOSTAURIN
     Dosage: 2 X 50 MG UNK
     Route: 065
  4. RYDAPT [Suspect]
     Active Substance: MIDOSTAURIN
     Indication: MASTOCYTOSIS
     Dosage: UNK
     Route: 065
     Dates: start: 201803
  5. PREDNISOLONE. [Concomitant]
     Active Substance: PREDNISOLONE
     Dosage: UNK
     Route: 065
     Dates: start: 201806
  6. TOREM [Concomitant]
     Active Substance: TORSEMIDE
     Indication: ASCITES
  7. PREDNISOLONE. [Concomitant]
     Active Substance: PREDNISOLONE
     Dosage: 5 MG, UNK (1.5 MG TAB PER DAY)
     Route: 065
     Dates: start: 20180912
  8. ALDACTONE [Concomitant]
     Active Substance: SPIRONOLACTONE
     Indication: PRODUCT USED FOR UNKNOWN INDICATION
     Dosage: 50 OT, QD
     Route: 065
  9. NOVAMINSULFON [Concomitant]
     Active Substance: METAMIZOLE
     Indication: PRODUCT USED FOR UNKNOWN INDICATION
     Dosage: 500 OT, PRN
     Route: 065
  10. BISOPROLOL [Concomitant]
     Active Substance: BISOPROLOL
     Indication: PRODUCT USED FOR UNKNOWN INDICATION
     Dosage: 5 OT, UNK (HALF TAB PER DAY)
     Route: 065
     Dates: start: 201807
  11. RYDAPT [Suspect]
     Active Substance: MIDOSTAURIN
     Dosage: 25 MG, BID
     Route: 065
     Dates: start: 201806
  12. TOREM [Concomitant]
     Active Substance: TORSEMIDE
     Indication: OEDEMA
     Dosage: 10 MG, QD
     Route: 065
  13. TOREM [Concomitant]
     Active Substance: TORSEMIDE
     Indication: TACHYCARDIA

REACTIONS (18)
  - Mastocytosis [Fatal]
  - Splenomegaly [Fatal]
  - Malignant neoplasm progression [Unknown]
  - Tachycardia [Unknown]
  - Hepatic cyst [Unknown]
  - Fatigue [Fatal]
  - Pleural effusion [Fatal]
  - Thrombocytopenia [Unknown]
  - Anaemia [Unknown]
  - Leukocytosis [Unknown]
  - Asthenia [Fatal]
  - General physical health deterioration [Fatal]
  - Abdominal pain upper [Unknown]
  - Ascites [Fatal]
  - Weight decreased [Fatal]
  - Osteosclerosis [Unknown]
  - Bone pain [Unknown]
  - Hypertension [Unknown]

NARRATIVE: CASE EVENT DATE: 201808
